FAERS Safety Report 19028699 (Version 2)
Quarter: 2021Q2

REPORT INFORMATION
  Report Type: Report from Study
  Country: None (occurrence: BR)
  Receive Date: 20210319
  Receipt Date: 20210419
  Transmission Date: 20210717
  Serious: Yes (Hospitalization, Other)
  Sender: FDA-Public Use
  Company Number: BR-ABBVIE-21K-020-3814875-00

PATIENT
  Age: 51 Year
  Sex: Female
  Weight: 88 kg

DRUGS (5)
  1. LEFLUNOMIDE. [Concomitant]
     Active Substance: LEFLUNOMIDE
     Indication: ARTHRITIS
     Dosage: UNSPECIFIED DOSE
  2. CHLOROTHIAZIDE. [Concomitant]
     Active Substance: CHLOROTHIAZIDE
     Indication: HYPERTENSION
     Dosage: UNSPECIFIED DOSE
  3. PREDNISONE. [Concomitant]
     Active Substance: PREDNISONE
     Indication: ARTHRITIS
     Dosage: UNSPECIFIED DOSE
  4. HUMIRA [Suspect]
     Active Substance: ADALIMUMAB
     Indication: RHEUMATOID ARTHRITIS
     Dosage: UNSPECIFIED DOSE
     Route: 058
     Dates: end: 20210211
  5. ENALAPRIL [Concomitant]
     Active Substance: ENALAPRIL
     Indication: HYPERTENSION
     Dosage: UNSPECIFIED DOSE

REACTIONS (12)
  - Skin bacterial infection [Recovering/Resolving]
  - Pain [Recovering/Resolving]
  - Wound secretion [Recovering/Resolving]
  - Intervertebral disc protrusion [Unknown]
  - Skin laceration [Recovering/Resolving]
  - Immunodeficiency [Unknown]
  - Varicose vein [Unknown]
  - Procedural pain [Recovering/Resolving]
  - Spinal disorder [Recovering/Resolving]
  - Back pain [Recovering/Resolving]
  - Accident [Recovering/Resolving]
  - Spinal fracture [Unknown]

NARRATIVE: CASE EVENT DATE: 20200928
